FAERS Safety Report 6984259 (Version 3)
Quarter: 2014Q1

REPORT INFORMATION
  Report Type: Spontaneous
  Country: US (occurrence: US)
  Receive Date: 20090501
  Receipt Date: 20140325
  Transmission Date: 20141002
  Serious: Yes (Death, Hospitalization)
  Sender: FDA-Public Use
  Company Number: US-ALEXION-A200800076

PATIENT
  Age: 74 Year
  Sex: Female

DRUGS (10)
  1. SOLIRIS 300MG [Suspect]
     Indication: PAROXYSMAL NOCTURNAL HAEMOGLOBINURIA
     Dosage: 600 MG, SINGLE
     Route: 042
     Dates: start: 20080221, end: 20080221
  2. INSULIN [Concomitant]
     Indication: DIABETES MELLITUS
     Dosage: UNK
  3. NORVASC /00972401/ [Concomitant]
     Indication: HYPERTENSION
     Dosage: 10 MG, QD
     Route: 048
  4. FOLIC ACID [Concomitant]
     Indication: PAROXYSMAL NOCTURNAL HAEMOGLOBINURIA
     Dosage: 5 MG, QD
     Route: 048
  5. CALCIUM CALTRATE [Concomitant]
     Dosage: 1500 MG, QD
     Route: 048
  6. VITAMIN B6 [Concomitant]
     Dosage: 400 UT, QD
     Route: 048
  7. VITAMIN B12  /00056201/ [Concomitant]
     Dosage: 200 UG, QD
     Route: 048
  8. COLESTYRAMIN [Concomitant]
     Dosage: UNK, QD
  9. LASIX /00032601/ [Concomitant]
     Dosage: 40 MG, QD
     Route: 048
  10. CYCLOSPORINE [Concomitant]
     Dosage: 75 MG, BID
     Route: 048

REACTIONS (3)
  - Pancytopenia [Fatal]
  - Bacteraemia [Recovered/Resolved]
  - Febrile neutropenia [Unknown]
